FAERS Safety Report 8516166-8 (Version None)
Quarter: 2012Q3

REPORT INFORMATION
  Report Type: 
  Country: None (occurrence: None)
  Receive Date: 20120717
  Receipt Date: 20120716
  Transmission Date: 20120928
  Serious: Yes (Other)
  Sender: FDA-Public Use
  Company Number: US-ROCHE-1024509

PATIENT
  Sex: Female
  Weight: 72.731 kg

DRUGS (5)
  1. ZELBORAF [Suspect]
     Route: 048
     Dates: start: 20120517, end: 20120606
  2. ARICEPT [Concomitant]
     Dosage: IN NIGHT
     Route: 048
  3. PREDNISONE [Concomitant]
     Indication: ARTHRALGIA
     Route: 048
     Dates: start: 20111201, end: 20120101
  4. ZELBORAF [Suspect]
     Indication: MALIGNANT MELANOMA
     Route: 048
     Dates: start: 20111101, end: 20120201
  5. ASPIRIN [Concomitant]
     Route: 048

REACTIONS (9)
  - RASH [None]
  - PAIN IN EXTREMITY [None]
  - SKIN EXFOLIATION [None]
  - BONE PAIN [None]
  - YELLOW SKIN [None]
  - ERYTHEMA [None]
  - PALMAR-PLANTAR ERYTHRODYSAESTHESIA SYNDROME [None]
  - PRURITUS [None]
  - LIVER FUNCTION TEST ABNORMAL [None]
